FAERS Safety Report 8621402-3 (Version None)
Quarter: 2012Q3

REPORT INFORMATION
  Report Type: 
  Country: None (occurrence: None)
  Receive Date: 20120824
  Receipt Date: 20120822
  Transmission Date: 20120928
  Serious: No
  Sender: FDA-Public Use
  Company Number: US-PFIZER INC-2012206879

PATIENT
  Age: 47 Year
  Sex: Female
  Weight: 73.016 kg

DRUGS (2)
  1. GABAPENTIN [Suspect]
     Indication: OCCIPITAL NEURALGIA
     Dosage: 300 MG, 3X/DAY
     Dates: start: 20120813
  2. VESICARE [Concomitant]
     Indication: URINARY INCONTINENCE
     Dosage: 10 MG, DAILY

REACTIONS (2)
  - OROPHARYNGEAL PAIN [None]
  - ORAL PAIN [None]
